FAERS Safety Report 9038152 (Version 1)
Quarter: 2013Q1

REPORT INFORMATION
  Report Type: Spontaneous
  Country: US (occurrence: US)
  Receive Date: 20130129
  Receipt Date: 20130129
  Transmission Date: 20140127
  Serious: No
  Sender: FDA-Public Use
  Company Number: US-GLAXOSMITHKLINE-A0968866A

PATIENT
  Age: 43 Year
  Sex: Female

DRUGS (2)
  1. WELLBUTRIN XL [Suspect]
     Indication: DEPRESSION
     Dosage: 300MG PER DAY
     Route: 048
     Dates: start: 201101, end: 201107
  2. SYNTHROID [Concomitant]
     Dates: start: 2009

REACTIONS (4)
  - Dyskinesia [Recovered/Resolved]
  - Flashback [Unknown]
  - Agitation [Unknown]
  - Anger [Unknown]
